FAERS Safety Report 9394470 (Version 1)
Quarter: 2013Q3

REPORT INFORMATION
  Report Type: Spontaneous
  Country: US (occurrence: None)
  Receive Date: 20130709
  Receipt Date: 20130709
  Transmission Date: 20140515
  Serious: No
  Sender: FDA-Public Use
  Company Number: None

PATIENT
  Age: 35 Year
  Sex: Female

DRUGS (1)
  1. MULTIHANCE [Suspect]
     Indication: UTERINE LEIOMYOMA
     Route: 042
     Dates: start: 20130610, end: 20130610

REACTIONS (2)
  - Ear pruritus [None]
  - Throat irritation [None]
